FAERS Safety Report 6524650-1 (Version None)
Quarter: 2010Q1

REPORT INFORMATION
  Report Type: 
  Country: None (occurrence: None)
  Receive Date: 20100104
  Receipt Date: 20091231
  Transmission Date: 20100710
  Serious: Yes (Death)
  Sender: FDA-Public Use
  Company Number: PHHY2009IE53222

PATIENT
  Sex: Female

DRUGS (2)
  1. CLOZARIL [Suspect]
     Indication: SCHIZOPHRENIA
     Dosage: 75 MG, UNK
     Route: 048
     Dates: start: 20030301
  2. CLOZARIL [Suspect]
     Dosage: UNK

REACTIONS (1)
  - ROAD TRAFFIC ACCIDENT [None]
